FAERS Safety Report 15494765 (Version 1)
Quarter: 2018Q4

REPORT INFORMATION
  Report Type: Spontaneous
  Country: US (occurrence: US)
  Receive Date: 20181012
  Receipt Date: 20181012
  Transmission Date: 20190205
  Serious: Yes (Hospitalization, Other)
  Sender: FDA-Public Use
  Company Number: US-OTSUKA-2018_032752

PATIENT
  Age: 62 Year
  Sex: Female

DRUGS (3)
  1. CLOZAPINE. [Concomitant]
     Active Substance: CLOZAPINE
     Indication: PRODUCT USED FOR UNKNOWN INDICATION
     Dosage: UNK
     Route: 065
  2. BIOFREEZE [Concomitant]
     Active Substance: MENTHOL
     Indication: PRODUCT USED FOR UNKNOWN INDICATION
     Dosage: UNK
     Route: 065
     Dates: start: 201804
  3. NUEDEXTA [Suspect]
     Active Substance: DEXTROMETHORPHAN HYDROBROMIDE\QUINIDINE SULFATE
     Indication: SCHIZOAFFECTIVE DISORDER
     Dosage: 1 DF, BID
     Route: 048
     Dates: start: 201802, end: 201808

REACTIONS (3)
  - Cerebrovascular accident [Unknown]
  - Product use in unapproved indication [Unknown]
  - Lethargy [Unknown]

NARRATIVE: CASE EVENT DATE: 201802
